FAERS Safety Report 10070313 (Version 2)
Quarter: 2014Q2

REPORT INFORMATION
  Report Type: Spontaneous
  Country: US (occurrence: US)
  Receive Date: 20140410
  Receipt Date: 20140410
  Transmission Date: 20141212
  Serious: Yes (Hospitalization)
  Sender: FDA-Public Use
  Company Number: US-JNJFOC-20140311706

PATIENT
  Sex: Male

DRUGS (3)
  1. INVOKANA [Suspect]
     Indication: DIABETES MELLITUS
     Route: 048
  2. METFORMIN [Concomitant]
  3. SULFONYLUREA AGENT [Concomitant]

REACTIONS (2)
  - Hypoglycaemia [Unknown]
  - Therapeutic response increased [Unknown]
